FAERS Safety Report 7744187-1 (Version None)
Quarter: 2011Q3

REPORT INFORMATION
  Report Type: 
  Country: None (occurrence: None)
  Receive Date: 20110912
  Receipt Date: 20110831
  Transmission Date: 20111222
  Serious: Yes (Hospitalization)
  Sender: FDA-Public Use
  Company Number: US-CELGENEUS-163-21880-11083564

PATIENT
  Sex: Male
  Weight: 83.99 kg

DRUGS (1)
  1. REVLIMID [Suspect]
     Indication: MULTIPLE MYELOMA
     Dosage: 25 MILLIGRAM
     Route: 048
     Dates: start: 20110801

REACTIONS (3)
  - INTESTINAL OBSTRUCTION [None]
  - PROSTATOMEGALY [None]
  - RENAL IMPAIRMENT [None]
